FAERS Safety Report 16170702 (Version 1)
Quarter: 2019Q2

REPORT INFORMATION
  Report Type: Spontaneous
  Country: ES (occurrence: ES)
  Receive Date: 20190408
  Receipt Date: 20190408
  Transmission Date: 20190711
  Serious: Yes (Other)
  Sender: FDA-Public Use
  Company Number: ES-PFIZER INC-2019144235

PATIENT
  Age: 76 Year

DRUGS (8)
  1. FILGRASTIM [Suspect]
     Active Substance: FILGRASTIM
     Indication: THROMBOCYTOPENIA
     Dosage: 300 UG, (OCCASIONAL DOSES IN FIRST FOUR CYCLES)
     Dates: start: 201707
  2. KYPROLIS [Suspect]
     Active Substance: CARFILZOMIB
     Indication: PLASMA CELL MYELOMA
     Dosage: 27 MG/M2, CYCLIC (DAYS: 1, 2, 8, 9, 15 AND 16 UNTIL 12TH CYCLE, FROM 13TH CYCLE DAYS: 1, 2, 15)
     Dates: start: 201711
  3. DEXAMETHASONE. [Concomitant]
     Active Substance: DEXAMETHASONE
     Indication: PLASMA CELL MYELOMA
     Dosage: 40 MG, DAYS 1, 8 AND 15
     Route: 042
     Dates: start: 201711
  4. REVLIMID [Concomitant]
     Active Substance: LENALIDOMIDE
     Indication: PLASMA CELL MYELOMA
     Dosage: 25 MG, FOR 21 DAYS
     Dates: start: 201711
  5. ADIRO [Concomitant]
     Active Substance: ASPIRIN
     Dosage: 100 MG, FROM 5TH CYCLE ONWARDS
  6. CLEXANE [Concomitant]
     Active Substance: ENOXAPARIN SODIUM
     Indication: THROMBOPHLEBITIS
     Dosage: 40 MG, 1X/DAY (FROM 1ST TO 4TH CYCLE FOR 1 WEEK))
     Route: 058
  7. ZOMETA [Concomitant]
     Active Substance: ZOLEDRONIC ACID
     Indication: NEPHROPATHY TOXIC
     Dosage: 3.3 MG, MONTHLY (QMO (WITH DOSE ADJUSTMENT FOR KIDNEY INJURY)
  8. FILGRASTIM [Suspect]
     Active Substance: FILGRASTIM
     Indication: NEUTROPENIA

REACTIONS (10)
  - Tachycardia [Unknown]
  - Upper respiratory tract infection [Unknown]
  - Neuropathy peripheral [Recovered/Resolved]
  - Thrombocytopenia [Unknown]
  - Thrombophlebitis [Unknown]
  - Muscle strain [Unknown]
  - Hypertension [Unknown]
  - Rash [Unknown]
  - Anaemia [Unknown]
  - Neutropenia [Unknown]

NARRATIVE: CASE EVENT DATE: 201707
